FAERS Safety Report 4625590-5 (Version None)
Quarter: 2005Q1

REPORT INFORMATION
  Report Type: 
  Country: None (occurrence: None)
  Receive Date: 20050331
  Receipt Date: 20050331
  Transmission Date: 20050727
  Serious: No
  Sender: FDA-Public Use
  Company Number: None

PATIENT
  Age: 80 Year
  Sex: Female

DRUGS (5)
  1. CITALOPRAM   10MG [Suspect]
     Indication: DEPRESSION
     Dosage: ONE DAILY BY MOUTH
     Route: 048
     Dates: start: 20040201
  2. OXYTROL [Concomitant]
  3. NORVASC [Concomitant]
  4. ULTRACET [Concomitant]
  5. CENESTIN [Concomitant]

REACTIONS (3)
  - CONDITION AGGRAVATED [None]
  - DEPRESSION [None]
  - PHARMACEUTICAL PRODUCT COMPLAINT [None]
